FAERS Safety Report 9503822 (Version 1)
Quarter: 2013Q3

REPORT INFORMATION
  Report Type: Spontaneous
  Country: BR (occurrence: BR)
  Receive Date: 20130906
  Receipt Date: 20130906
  Transmission Date: 20140515
  Serious: Yes (Hospitalization, Other)
  Sender: FDA-Public Use
  Company Number: BR-JNJFOC-20130902357

PATIENT
  Age: 76 Year
  Sex: Female
  Weight: 40 kg

DRUGS (2)
  1. XARELTO [Suspect]
     Indication: CEREBRAL ISCHAEMIA
     Route: 048
     Dates: start: 201211, end: 20130813
  2. ZIDERON [Concomitant]
     Indication: MEMORY IMPAIRMENT
     Route: 048
     Dates: start: 201211

REACTIONS (4)
  - Fall [Recovered/Resolved]
  - Cerebral haemorrhage [Recovered/Resolved]
  - Haematocrit decreased [Not Recovered/Not Resolved]
  - Off label use [Unknown]
